FAERS Safety Report 4870596-4 (Version None)
Quarter: 2005Q4

REPORT INFORMATION
  Report Type: 
  Country: None (occurrence: None)
  Receive Date: 20051228
  Receipt Date: 20051212
  Transmission Date: 20060501
  Serious: Yes (Hospitalization)
  Sender: FDA-Public Use
  Company Number: 2005PV006111

PATIENT
  Age: 60 Year
  Sex: Male

DRUGS (8)
  1. BYETTA [Suspect]
     Indication: DIABETES MELLITUS
     Dosage: 5 MCG;BID;SC
     Route: 058
     Dates: start: 20051130, end: 20051207
  2. BYETTA [Suspect]
     Indication: DIABETES MELLITUS
     Dosage: 5 MCG;BID;SC
     Route: 058
     Dates: start: 20051201
  3. WARFARIN SODIUM [Concomitant]
  4. CITALOPRAM HYDROBROMIDE [Concomitant]
  5. METFORMIN [Concomitant]
  6. INSULIN GLARGINE [Concomitant]
  7. RAMIPRIL [Concomitant]
  8. INSULIN ASPART [Concomitant]

REACTIONS (3)
  - APHASIA [None]
  - BLOOD GLUCOSE INCREASED [None]
  - CONVULSION [None]
